FAERS Safety Report 20175797 (Version 2)
Quarter: 2021Q4

REPORT INFORMATION
  Report Type: Spontaneous
  Country: CA (occurrence: CA)
  Receive Date: 20211213
  Receipt Date: 20211216
  Transmission Date: 20220303
  Serious: Yes (Other)
  Sender: FDA-Public Use
  Company Number: CA-PFIZER INC-202101711550

PATIENT
  Age: 21 Year
  Sex: Female

DRUGS (2)
  1. DEPO-PROVERA [Suspect]
     Active Substance: MEDROXYPROGESTERONE ACETATE
     Dosage: 150 MG
     Dates: start: 20151013, end: 20190123
  2. DEPO-PROVERA [Suspect]
     Active Substance: MEDROXYPROGESTERONE ACETATE
     Dosage: 150 MG, EVERY 3 MONTHS
     Route: 030
     Dates: start: 20211201

REACTIONS (9)
  - Blood pressure fluctuation [Unknown]
  - Anaphylactic reaction [Recovered/Resolved]
  - Abdominal pain [Unknown]
  - Erythema [Unknown]
  - Chest discomfort [Unknown]
  - Heart rate increased [Unknown]
  - Pruritus [Unknown]
  - Chills [Unknown]
  - Photopsia [Unknown]

NARRATIVE: CASE EVENT DATE: 20211201
